FAERS Safety Report 16838907 (Version 2)
Quarter: 2019Q4

REPORT INFORMATION
  Report Type: Report from Study
  Country: None (occurrence: US)
  Receive Date: 20190923
  Receipt Date: 20191009
  Transmission Date: 20200122
  Serious: Yes (Hospitalization)
  Sender: FDA-Public Use
  Company Number: US-ABBVIE-19K-163-2904366-00

PATIENT
  Age: 79 Year
  Sex: Female
  Weight: 72.64 kg

DRUGS (7)
  1. HUMIRA [Suspect]
     Active Substance: ADALIMUMAB
     Indication: CROHN^S DISEASE
     Dosage: CITRATE FREE
     Route: 058
     Dates: start: 20180705
  2. AMLODIPINE [Concomitant]
     Active Substance: AMLODIPINE BESYLATE
     Indication: HYPERTENSION
  3. HUMIRA [Suspect]
     Active Substance: ADALIMUMAB
     Indication: COLITIS ULCERATIVE
     Route: 058
  4. LEVOTHYROXINE. [Concomitant]
     Active Substance: LEVOTHYROXINE
     Indication: THYROID DISORDER
  5. VISTARIL [Concomitant]
     Active Substance: HYDROXYZINE PAMOATE
     Indication: HYPERSENSITIVITY
  6. VALSARTAN. [Concomitant]
     Active Substance: VALSARTAN
     Indication: HYPERTENSION
  7. SERTRALINE [Concomitant]
     Active Substance: SERTRALINE HYDROCHLORIDE
     Indication: DEPRESSION

REACTIONS (5)
  - Drug ineffective [Unknown]
  - Fall [Recovered/Resolved]
  - Back injury [Recovering/Resolving]
  - Lumbar vertebral fracture [Recovering/Resolving]
  - Pain [Recovering/Resolving]

NARRATIVE: CASE EVENT DATE: 201908
